FAERS Safety Report 8603493-9 (Version None)
Quarter: 2012Q3

REPORT INFORMATION
  Report Type: 
  Country: None (occurrence: None)
  Receive Date: 20120817
  Receipt Date: 20120807
  Transmission Date: 20120928
  Serious: Yes (Other)
  Sender: FDA-Public Use
  Company Number: AU-ELI_LILLY_AND_COMPANY-AU201208002086

PATIENT
  Sex: Male

DRUGS (2)
  1. CARDIZEM [Concomitant]
     Indication: ANGINA PECTORIS
     Dosage: UNK
     Dates: start: 20020101
  2. BYETTA [Suspect]
     Indication: TYPE 2 DIABETES MELLITUS
     Dosage: 5 UG, BID
     Dates: start: 20120419, end: 20120524

REACTIONS (4)
  - MYOCARDIAL INFARCTION [None]
  - CHEST DISCOMFORT [None]
  - ABDOMINAL PAIN UPPER [None]
  - DYSPNOEA [None]
